FAERS Safety Report 4689710-9 (Version None)
Quarter: 2005Q2

REPORT INFORMATION
  Report Type: 
  Country: None (occurrence: None)
  Receive Date: 20050614
  Receipt Date: 20050511
  Transmission Date: 20051028
  Serious: Yes (Other)
  Sender: FDA-Public Use
  Company Number: DE-NOVOPROD-244092

PATIENT
  Age: 61 Year
  Sex: Male
  Weight: 78 kg

DRUGS (4)
  1. ACTRAPID HM(GE) PENFILL [Suspect]
     Indication: DIABETES MELLITUS
     Route: 058
     Dates: start: 20041101
  2. LANTUS [Concomitant]
     Dosage: 6 IU, QD
     Route: 058
     Dates: start: 20041101
  3. PANZYTRAT [Concomitant]
     Dosage: 1 UNK, TID
     Route: 048
     Dates: start: 20041101
  4. SPIRONOLACTONE [Concomitant]
     Dosage: 1 TAB, BID
     Route: 048
     Dates: start: 20041101

REACTIONS (6)
  - ABDOMINAL DISCOMFORT [None]
  - BLOOD GLUCOSE FLUCTUATION [None]
  - FEELING ABNORMAL [None]
  - LIMB DISCOMFORT [None]
  - PAIN IN EXTREMITY [None]
  - PHARMACEUTICAL PRODUCT COMPLAINT [None]
